FAERS Safety Report 9838297 (Version 1)
Quarter: 2014Q1

REPORT INFORMATION
  Report Type: Spontaneous
  Country: US (occurrence: US)
  Receive Date: 20140123
  Receipt Date: 20140123
  Transmission Date: 20141002
  Serious: Yes (Death, Other)
  Sender: FDA-Public Use
  Company Number: US-CELGENEUS-163-21880-14013201

PATIENT
  Age: 48 Year
  Sex: Male

DRUGS (2)
  1. REVLIMID [Suspect]
     Indication: PLASMA CELL MYELOMA
     Dosage: 25 MILLIGRAM
     Route: 048
  2. ASPIRINE [Concomitant]
     Indication: THROMBOSIS PROPHYLAXIS
     Route: 065

REACTIONS (2)
  - Graft versus host disease [Unknown]
  - Plasma cell myeloma [Fatal]
